FAERS Safety Report 19353128 (Version 6)
Quarter: 2021Q3

REPORT INFORMATION
  Report Type: Report from Study
  Country: US (occurrence: US)
  Receive Date: 20210531
  Receipt Date: 20210923
  Transmission Date: 20211014
  Serious: Yes (Hospitalization, Other)
  Sender: FDA-Public Use
  Company Number: NVSC2021US112914

PATIENT
  Sex: Male

DRUGS (1)
  1. ENTRESTO [Suspect]
     Active Substance: SACUBITRIL\VALSARTAN
     Indication: PRODUCT USED FOR UNKNOWN INDICATION
     Dosage: 1 DF, BID(24/26MG)
     Route: 048

REACTIONS (5)
  - Fluid retention [Unknown]
  - Weight decreased [Unknown]
  - Dyspnoea [Unknown]
  - Fatigue [Unknown]
  - Aortic valve incompetence [Unknown]
